FAERS Safety Report 10098668 (Version 1)
Quarter: 2014Q2

REPORT INFORMATION
  Report Type: Spontaneous
  Country: FR (occurrence: None)
  Receive Date: 20140421
  Receipt Date: 20140421
  Transmission Date: 20141212
  Serious: Yes (Other)
  Sender: FDA-Public Use
  Company Number: 2014P1003191

PATIENT
  Age: 50 Year
  Sex: Male

DRUGS (6)
  1. OLANZAPINE [Suspect]
     Indication: PSYCHOTIC DISORDER
  2. CYMEMAZINE [Concomitant]
  3. PIPERCILLIN\TAZOBACTAM [Concomitant]
  4. CEPOTAZIME [Concomitant]
  5. FOSFOMYCIN [Concomitant]
  6. RIFAMPICIN [Concomitant]

REACTIONS (4)
  - Hepatocellular injury [None]
  - Cholestasis [None]
  - Drug reaction with eosinophilia and systemic symptoms [None]
  - Cross sensitivity reaction [None]
